FAERS Safety Report 8804635 (Version 2)
Quarter: 2012Q4

REPORT INFORMATION
  Report Type: 
  Country: US (occurrence: US)
  Receive Date: 20120924
  Receipt Date: 20121002
  Transmission Date: 20130627
  Serious: Yes (Death, Life-Threatening, Hospitalization, Disabling, Other)
  Sender: FDA-Public Use
  Company Number: US-ACTELION-A-NJ2011-52654

PATIENT
  Age: 55 Year
  Sex: Female

DRUGS (2)
  1. VELETRI [Suspect]
     Indication: PULMONARY ARTERIAL HYPERTENSION
     Dosage: 3 ng/kg, per min
     Route: 041
     Dates: start: 20110713
  2. LETAIRIS [Concomitant]

REACTIONS (8)
  - Lung neoplasm malignant [Fatal]
  - Metastases to central nervous system [Fatal]
  - Blood sodium decreased [Recovered/Resolved]
  - Blood potassium decreased [Recovered/Resolved]
  - Constipation [Recovered/Resolved]
  - Chest discomfort [Recovered/Resolved]
  - Headache [Unknown]
  - Fatigue [Unknown]
